FAERS Safety Report 15389894 (Version 3)
Quarter: 2019Q1

REPORT INFORMATION
  Report Type: Spontaneous
  Country: US (occurrence: US)
  Receive Date: 20180917
  Receipt Date: 20190207
  Transmission Date: 20190417
  Serious: No
  Sender: FDA-Public Use
  Company Number: US-AMGEN-USASP2018126321

PATIENT
  Age: 47 Year
  Sex: Male

DRUGS (5)
  1. ETANERCEPT [Suspect]
     Active Substance: ETANERCEPT
     Indication: PSORIASIS
     Dosage: 50 MG, QWK
     Route: 058
     Dates: start: 200307
  2. ALEFACEPT [Concomitant]
     Active Substance: ALEFACEPT
     Indication: PSORIATIC ARTHROPATHY
     Dosage: 15 MG, QWK
     Route: 030
     Dates: start: 200311
  3. INDOMETHACIN. [Concomitant]
     Active Substance: INDOMETHACIN
     Indication: PSORIATIC ARTHROPATHY
     Dosage: UNK
  4. ETANERCEPT [Suspect]
     Active Substance: ETANERCEPT
     Indication: PSORIATIC ARTHROPATHY
     Dosage: 25 MG, Q2WK
     Route: 058
  5. ALLOPURINOL. [Concomitant]
     Active Substance: ALLOPURINOL
     Indication: PSORIATIC ARTHROPATHY
     Dosage: UNK

REACTIONS (2)
  - Psoriasis [Unknown]
  - Drug ineffective [Unknown]
